FAERS Safety Report 15148854 (Version 1)
Quarter: 2018Q3

REPORT INFORMATION
  Report Type: Spontaneous
  Country: FR (occurrence: FR)
  Receive Date: 20180716
  Receipt Date: 20180716
  Transmission Date: 20181010
  Serious: Yes (Hospitalization)
  Sender: FDA-Public Use
  Company Number: FR-BAUSCH-BL-2018-019100

PATIENT
  Age: 54 Year
  Sex: Female

DRUGS (1)
  1. GENTAMICINE [Suspect]
     Active Substance: GENTAMICIN
     Indication: INFECTION
     Route: 065
     Dates: start: 20180511, end: 20180512

REACTIONS (1)
  - Bartter^s syndrome [Recovered/Resolved]

NARRATIVE: CASE EVENT DATE: 20180517
